FAERS Safety Report 7809128-7 (Version None)
Quarter: 2011Q4

REPORT INFORMATION
  Report Type: 
  Country: None (occurrence: None)
  Receive Date: 20111012
  Receipt Date: 20111003
  Transmission Date: 20120403
  Serious: Yes (Hospitalization)
  Sender: FDA-Public Use
  Company Number: US-JNJFOC-20110904690

PATIENT
  Sex: Female
  Weight: 54.43 kg

DRUGS (1)
  1. REMICADE [Suspect]
     Indication: RHEUMATOID ARTHRITIS
     Route: 042

REACTIONS (4)
  - BRONCHITIS CHRONIC [None]
  - CHRONIC OBSTRUCTIVE PULMONARY DISEASE [None]
  - ARTHROPATHY [None]
  - DECREASED IMMUNE RESPONSIVENESS [None]
